FAERS Safety Report 9437242 (Version 1)
Quarter: 2013Q3

REPORT INFORMATION
  Report Type: Report from Study
  Country: NL (occurrence: NL)
  Receive Date: 20130802
  Receipt Date: 20130802
  Transmission Date: 20140515
  Serious: Yes (Hospitalization)
  Sender: FDA-Public Use
  Company Number: PHHY2013NL044745

PATIENT
  Age: 70 Year
  Sex: Male
  Weight: 95 kg

DRUGS (3)
  1. SANDOSTATIN LAR [Suspect]
     Indication: NEUROENDOCRINE TUMOUR
     Dosage: 20 MG, ONCE PER 4 WEEKS
     Dates: start: 20110725
  2. ENALAPRIL [Concomitant]
     Dosage: 20 MG, 1 DD
  3. SIMVASTATIN [Concomitant]
     Dosage: 40 MG, 1 DD

REACTIONS (4)
  - Chest pain [Recovered/Resolved with Sequelae]
  - Dizziness [Recovered/Resolved with Sequelae]
  - Bradycardia [Recovered/Resolved with Sequelae]
  - Palpitations [Not Recovered/Not Resolved]
